FAERS Safety Report 8624481-2 (Version None)
Quarter: 2012Q3

REPORT INFORMATION
  Report Type: 
  Country: None (occurrence: None)
  Receive Date: 20120827
  Receipt Date: 20120820
  Transmission Date: 20120928
  Serious: Yes (Other)
  Sender: FDA-Public Use
  Company Number: CA-UCBSA-064006

PATIENT
  Age: 26 Year
  Sex: Female

DRUGS (4)
  1. CIMZIA [Suspect]
     Route: 058
     Dates: start: 20120607, end: 20120705
  2. PLAQUENIL [Concomitant]
     Indication: RHEUMATOID ARTHRITIS
     Dosage: 5/7
     Route: 048
     Dates: start: 20120117
  3. CLONAZEPAM [Concomitant]
     Dosage: UNKNOWN, OD
     Route: 048
  4. CIMZIA [Suspect]
     Indication: RHEUMATOID ARTHRITIS
     Route: 058
     Dates: start: 20120719

REACTIONS (2)
  - CANDIDIASIS [None]
  - INJECTION SITE REACTION [None]
